FAERS Safety Report 4278385-9 (Version None)
Quarter: 2004Q1

REPORT INFORMATION
  Report Type: 
  Country: None (occurrence: None)
  Receive Date: 20040123
  Receipt Date: 20040122
  Transmission Date: 20041129
  Serious: Yes (Life-Threatening, Hospitalization)
  Sender: FDA-Public Use
  Company Number: JP-ROCHE-356656

PATIENT
  Age: 53 Year
  Sex: Male

DRUGS (3)
  1. NICARDIPINE HCL [Suspect]
     Route: 065
  2. GLYCERYL TRINITRATE [Suspect]
     Route: 065
  3. METOPROLOL [Concomitant]

REACTIONS (3)
  - AORTIC DISSECTION [None]
  - HYPOXIA [None]
  - PLEURAL EFFUSION [None]
